FAERS Safety Report 16217447 (Version 10)
Quarter: 2023Q2

REPORT INFORMATION
  Report Type: Spontaneous
  Country: US (occurrence: US)
  Receive Date: 20190419
  Receipt Date: 20230609
  Transmission Date: 20230722
  Serious: No
  Sender: FDA-Public Use
  Company Number: US-PFIZER INC-2019165483

PATIENT
  Age: 72 Year
  Sex: Female

DRUGS (3)
  1. IBRANCE [Suspect]
     Active Substance: PALBOCICLIB
     Indication: Breast cancer female
     Dosage: 100 MG, CYCLIC (QD X 21 DAYS DAILY WITH FOOD, THEN 7 DAYS REST)
     Route: 048
  2. IBRANCE [Suspect]
     Active Substance: PALBOCICLIB
     Indication: Breast cancer metastatic
  3. LETROZOLE [Concomitant]
     Active Substance: LETROZOLE
     Dosage: 2.5 MG

REACTIONS (9)
  - Alopecia [Unknown]
  - Mood altered [Unknown]
  - Malaise [Unknown]
  - Bone pain [Unknown]
  - Arthralgia [Unknown]
  - Bacterial infection [Unknown]
  - Oral pain [Unknown]
  - Swelling face [Unknown]
  - Diarrhoea [Unknown]
